FAERS Safety Report 16449446 (Version 1)
Quarter: 2019Q2

REPORT INFORMATION
  Report Type: Spontaneous
  Country: US (occurrence: US)
  Receive Date: 20190509
  Receipt Date: 20190509
  Transmission Date: 20190711
  Serious: No
  Sender: FDA-Public Use
  Company Number: None

PATIENT
  Age: 48 Year
  Sex: Female

DRUGS (2)
  1. TARGRETIN [Suspect]
     Active Substance: BEXAROTENE
     Dates: start: 201710, end: 201903
  2. TARGRETIN [Concomitant]
     Active Substance: BEXAROTENE

REACTIONS (1)
  - Lipids increased [None]

NARRATIVE: CASE EVENT DATE: 20190313
